FAERS Safety Report 12880083 (Version 2)
Quarter: 2016Q4

REPORT INFORMATION
  Report Type: Report from Study
  Country: US (occurrence: US)
  Receive Date: 20161025
  Receipt Date: 20161031
  Transmission Date: 20170207
  Serious: Yes (Hospitalization, Other)
  Sender: FDA-Public Use
  Company Number: US-BAYER-2016-075998

PATIENT
  Age: 79 Year
  Sex: Female
  Weight: 53.52 kg

DRUGS (6)
  1. ADEMPAS [Suspect]
     Active Substance: RIOCIGUAT
     Indication: PULMONARY ARTERIAL HYPERTENSION
     Dosage: 1.5 MG, TID
     Route: 048
  2. ADEMPAS [Suspect]
     Active Substance: RIOCIGUAT
     Indication: PULMONARY ARTERIAL HYPERTENSION
     Dosage: 0.5 MG, TID
     Route: 048
     Dates: start: 20160329
  3. ADEMPAS [Suspect]
     Active Substance: RIOCIGUAT
     Indication: PULMONARY ARTERIAL HYPERTENSION
     Dosage: 2.5 MG, TID
     Route: 048
  4. ADEMPAS [Suspect]
     Active Substance: RIOCIGUAT
     Indication: PULMONARY ARTERIAL HYPERTENSION
     Dosage: 2.5 MG, TID
     Route: 048
  5. ADEMPAS [Suspect]
     Active Substance: RIOCIGUAT
     Indication: PULMONARY ARTERIAL HYPERTENSION
     Dosage: 2 MG, TID
     Route: 048
  6. COUMADIN [Concomitant]
     Active Substance: WARFARIN SODIUM
     Dosage: UNK

REACTIONS (19)
  - Lung disorder [Unknown]
  - Memory impairment [None]
  - Peripheral swelling [Unknown]
  - Bronchitis [Unknown]
  - Skin ulcer [None]
  - Animal scratch [None]
  - Hypotension [Unknown]
  - Hypersomnia [None]
  - Chronic obstructive pulmonary disease [Unknown]
  - Oedema peripheral [None]
  - Oedema peripheral [Unknown]
  - Oxygen consumption decreased [Unknown]
  - Heart rate decreased [Unknown]
  - Fatigue [Recovering/Resolving]
  - Rales [Unknown]
  - Dementia [None]
  - Subcutaneous haematoma [None]
  - Cardiac failure congestive [None]
  - Renal failure [None]

NARRATIVE: CASE EVENT DATE: 20160720
